FAERS Safety Report 10268741 (Version 3)
Quarter: 2014Q3

REPORT INFORMATION
  Report Type: Spontaneous
  Country: US (occurrence: US)
  Receive Date: 20140630
  Receipt Date: 20140910
  Transmission Date: 20150326
  Serious: Yes (Hospitalization)
  Sender: FDA-Public Use
  Company Number: US-GLAXOSMITHKLINE-A0795485A

PATIENT
  Age: 58 Year
  Sex: Female

DRUGS (18)
  1. LASIX [Concomitant]
     Active Substance: FUROSEMIDE
  2. CYANOCOBALAMINE [Concomitant]
     Route: 030
  3. EFFEXOR [Concomitant]
     Active Substance: VENLAFAXINE HYDROCHLORIDE
     Indication: DEPRESSION
  4. UNKNOWN [Concomitant]
     Active Substance: UNSPECIFIED INGREDIENT
     Dosage: 400MG TWICE PER DAY
  5. LISINOPRIL. [Concomitant]
     Active Substance: LISINOPRIL
  6. CALCITROL [Concomitant]
     Active Substance: CALCITRIOL
  7. IRON [Concomitant]
     Active Substance: IRON
  8. REQUIP XL [Suspect]
     Active Substance: ROPINIROLE HYDROCHLORIDE
     Indication: RESTLESS LEGS SYNDROME
     Dosage: 24MG PER DAY
     Route: 048
     Dates: start: 2006
  9. BUMETANIDE. [Concomitant]
     Active Substance: BUMETANIDE
     Dosage: 2MG TWICE PER DAY
  10. ALKA-SELTZER PLUS NOS [Concomitant]
     Active Substance: ACETAMINOPHEN\ASPIRIN\CHLORPHENIRAMINE MALEATE\DEXTROMETHORPHAN HYDROBROMIDE\DIPHENHYDRAMINE HYDROCHLORIDE\DOXYLAMINE SUCCINATE\PHENYLEPHRINE BITARTRATE\PHENYLEPHRINE HYDROCHLORIDE
  11. MAGNESIUM [Concomitant]
     Active Substance: MAGNESIUM
  12. SEREVENT [Suspect]
     Active Substance: SALMETEROL XINAFOATE
     Indication: PRODUCT USED FOR UNKNOWN INDICATION
     Dosage: 50MCG UNKNOWN
     Route: 065
     Dates: start: 20130426
  13. REQUIP [Concomitant]
     Active Substance: ROPINIROLE HYDROCHLORIDE
     Indication: RESTLESS LEGS SYNDROME
     Dosage: 8MG THREE TIMES PER DAY
     Route: 048
     Dates: start: 20090511, end: 20090608
  14. SPIRONOLACTONE. [Concomitant]
     Active Substance: SPIRONOLACTONE
     Dosage: 25MG TWICE PER DAY
  15. POTASSIUM [Concomitant]
     Active Substance: POTASSIUM
     Dosage: 10MEQ TWICE PER DAY
  16. K-DUR [Concomitant]
     Active Substance: POTASSIUM CHLORIDE
  17. VITAMIN D [Concomitant]
     Active Substance: CHOLECALCIFEROL
  18. WARFARIN [Concomitant]
     Active Substance: WARFARIN

REACTIONS (23)
  - Vomiting [Unknown]
  - Blood pressure decreased [Unknown]
  - Skin disorder [Unknown]
  - Mobility decreased [Recovering/Resolving]
  - Pain [Not Recovered/Not Resolved]
  - Asthenia [Unknown]
  - Dizziness [Unknown]
  - Sinus congestion [Unknown]
  - Pyrexia [Unknown]
  - Fall [Recovering/Resolving]
  - Limb crushing injury [Recovering/Resolving]
  - Fluid overload [Unknown]
  - Ill-defined disorder [Unknown]
  - Gastritis [Unknown]
  - Cough [Unknown]
  - Upper limb fracture [Unknown]
  - Abdominal discomfort [Unknown]
  - Sleep disorder [Unknown]
  - Limb operation [Recovering/Resolving]
  - Haematemesis [Unknown]
  - Cardiac failure [Unknown]
  - Oedema peripheral [Unknown]
  - Therapeutic response changed [Unknown]

NARRATIVE: CASE EVENT DATE: 20100306
